FAERS Safety Report 14067975 (Version 2)
Quarter: 2017Q4

REPORT INFORMATION
  Report Type: Spontaneous
  Country: BR (occurrence: BR)
  Receive Date: 20171010
  Receipt Date: 20171012
  Transmission Date: 20180321
  Serious: Yes (Other)
  Sender: FDA-Public Use
  Company Number: BR-ROCHE-2001206

PATIENT
  Sex: Male

DRUGS (2)
  1. RIVOTRIL [Suspect]
     Active Substance: CLONAZEPAM
     Indication: PRODUCT USED FOR UNKNOWN INDICATION
     Route: 065
  2. AMIORON [Suspect]
     Active Substance: AMIODARONE HYDROCHLORIDE
     Indication: PRODUCT USED FOR UNKNOWN INDICATION
     Route: 065

REACTIONS (8)
  - Product packaging issue [Unknown]
  - Intentional product use issue [None]
  - Insomnia [Unknown]
  - Hypertension [Recovering/Resolving]
  - Wrong drug administered [Unknown]
  - Product packaging quantity issue [Unknown]
  - Heart rate increased [Unknown]
  - Drug ineffective [Unknown]
